FAERS Safety Report 9288220 (Version 1)
Quarter: 2013Q2

REPORT INFORMATION
  Report Type: Report from Study
  Country: CA (occurrence: CA)
  Receive Date: 20130514
  Receipt Date: 20130514
  Transmission Date: 20140414
  Serious: Yes (Hospitalization)
  Sender: FDA-Public Use
  Company Number: CA-JNJFOC-20130505998

PATIENT
  Age: 55 Year
  Sex: Female
  Weight: 84.2 kg

DRUGS (2)
  1. REMICADE [Suspect]
     Indication: GLAUCOMA
     Route: 042
     Dates: start: 201002
  2. OXYCODONE [Concomitant]
     Indication: PAIN
     Route: 065

REACTIONS (2)
  - Stress fracture [Recovering/Resolving]
  - Off label use [Unknown]
